FAERS Safety Report 9387507 (Version 1)
Quarter: 2013Q3

REPORT INFORMATION
  Report Type: Spontaneous
  Country: US (occurrence: None)
  Receive Date: 20130702
  Receipt Date: 20130702
  Transmission Date: 20140515
  Serious: Yes (Other)
  Sender: FDA-Public Use
  Company Number: XL18413002906

PATIENT
  Age: 66 Year
  Sex: Female
  Weight: 71.2 kg

DRUGS (14)
  1. XL 184 (XL 184) CAPSULE [Suspect]
     Indication: BREAST CANCER
     Route: 048
     Dates: start: 20130514, end: 20130604
  2. ASPIRIN (ACETYLSALICYLIC ACID) [Concomitant]
  3. CALCIUM +D (CALCIUM, ERGOCALCIFEROL) [Concomitant]
  4. CLEOCIN T (CLINDAMYCIN PHOSPHATE) [Concomitant]
  5. COMPAZINE (PROCHLORPERAZINE EDISYLATE) [Concomitant]
  6. ERGOCALCIFEROL (ERGOCALCIFEROL) [Concomitant]
  7. IMODIUM AD (LOPERAMIDE HYDROCHLORIDE) [Concomitant]
  8. LOMOTIL (ATROPINE SULFATE, DIPHENOXYLATE HYDROCHLORIDE) [Concomitant]
  9. MULTIVITAMIN (VITAMINS NOS) [Concomitant]
  10. NYSTATIN (NYSTATIN) [Concomitant]
  11. OMEGA 3 (FISH OIL) [Concomitant]
  12. OMEPRAZOLE (OMEPRAZOLE) [Concomitant]
  13. SIMVASTATIN (SIMVASTATIN) [Concomitant]
  14. VITAMIN B COMPLEX (VITAMIN B COMPLEX) [Concomitant]

REACTIONS (9)
  - Disseminated intravascular coagulation [None]
  - Thrombocytopenia [None]
  - Breast cancer [None]
  - Malignant neoplasm progression [None]
  - Stomatitis [None]
  - Fatigue [None]
  - Cough [None]
  - Activated partial thromboplastin time prolonged [None]
  - Blood bilirubin increased [None]
